FAERS Safety Report 10099819 (Version 2)
Quarter: 2014Q2

REPORT INFORMATION
  Report Type: Spontaneous
  Country: US (occurrence: US)
  Receive Date: 20140423
  Receipt Date: 20140423
  Transmission Date: 20141212
  Serious: No
  Sender: FDA-Public Use
  Company Number: US-GILEAD-2013-0072929

PATIENT
  Sex: Female
  Weight: 52.66 kg

DRUGS (5)
  1. LETAIRIS [Suspect]
     Indication: PULMONARY ARTERIAL HYPERTENSION
     Dosage: 10 MG, QD
     Route: 048
     Dates: start: 20120630
  2. TYVASO [Concomitant]
  3. VIAGRA [Concomitant]
  4. NORETHINDRONE                      /00044901/ [Concomitant]
  5. WARFARIN [Concomitant]

REACTIONS (1)
  - Nasopharyngitis [Unknown]
